FAERS Safety Report 9460560 (Version 3)
Quarter: 2013Q3

REPORT INFORMATION
  Report Type: Spontaneous
  Country: DE (occurrence: DE)
  Receive Date: 20130815
  Receipt Date: 20130922
  Transmission Date: 20140515
  Serious: Yes (Other)
  Sender: FDA-Public Use
  Company Number: DE-US-EMD SERONO, INC.-7228288

PATIENT
  Age: 30 Year
  Sex: Female

DRUGS (1)
  1. REBIF [Suspect]
     Indication: MULTIPLE SCLEROSIS
     Route: 058
     Dates: start: 200803, end: 20130523

REACTIONS (4)
  - Major depression [Unknown]
  - Monoplegia [Unknown]
  - Multiple sclerosis relapse [Unknown]
  - Adjustment disorder [Unknown]
